FAERS Safety Report 13297082 (Version 1)
Quarter: 2017Q1

REPORT INFORMATION
  Report Type: Spontaneous
  Country: US (occurrence: US)
  Receive Date: 20170306
  Receipt Date: 20170306
  Transmission Date: 20170428
  Serious: No
  Sender: FDA-Public Use
  Company Number: US-ASTRAZENECA-2017SE22859

PATIENT
  Sex: Male
  Weight: 85.3 kg

DRUGS (8)
  1. TRIANTERENE HCTZ [Concomitant]
     Indication: BLOOD PRESSURE MEASUREMENT
     Route: 048
  2. TRIANTERENE HCTZ [Concomitant]
     Indication: DIURETIC THERAPY
     Route: 048
  3. VITAMIN B12 [Concomitant]
     Active Substance: CYANOCOBALAMIN
     Route: 048
  4. DOXAZOSIN [Concomitant]
     Active Substance: DOXAZOSIN\DOXAZOSIN MESYLATE
     Indication: BLOOD PRESSURE MEASUREMENT
     Route: 048
  5. FINASTERIDE. [Concomitant]
     Active Substance: FINASTERIDE
     Indication: ILL-DEFINED DISORDER
     Route: 048
  6. PANTOPRAZOLE [Concomitant]
     Active Substance: PANTOPRAZOLE SODIUM
     Indication: ABDOMINAL DISCOMFORT
     Route: 048
  7. SYMBICORT [Suspect]
     Active Substance: BUDESONIDE\FORMOTEROL FUMARATE DIHYDRATE
     Indication: ASTHMA
     Dosage: 160/4.5 MCG ONE PUFF TWICE A DAY
     Route: 055
  8. VITAMIN D 3 [Concomitant]
     Indication: BONE DISORDER
     Route: 048

REACTIONS (3)
  - Intentional product misuse [Unknown]
  - Ataxia [Unknown]
  - Drug dose omission [Unknown]
